FAERS Safety Report 11843263 (Version 3)
Quarter: 2015Q4

REPORT INFORMATION
  Report Type: Report from Study
  Country: US (occurrence: US)
  Receive Date: 20151216
  Receipt Date: 20151229
  Transmission Date: 20160305
  Serious: Yes (Other)
  Sender: FDA-Public Use
  Company Number: US-AMGEN-USASL2015130386

PATIENT
  Age: 68 Year
  Sex: Female

DRUGS (1)
  1. ENBREL [Suspect]
     Active Substance: ETANERCEPT
     Indication: RHEUMATOID ARTHRITIS
     Dosage: 50 MG, QWK
     Route: 065
     Dates: start: 20151110

REACTIONS (9)
  - Injection site extravasation [Unknown]
  - Injection site pain [Unknown]
  - Injection site warmth [Unknown]
  - Systemic lupus erythematosus [Unknown]
  - Injection site bruising [Unknown]
  - Influenza [Unknown]
  - Limb deformity [Unknown]
  - Injection site erythema [Unknown]
  - Wrong technique in product usage process [Unknown]

NARRATIVE: CASE EVENT DATE: 2015
